FAERS Safety Report 25591242 (Version 2)
Quarter: 2025Q3

REPORT INFORMATION
  Report Type: Spontaneous
  Country: US (occurrence: US)
  Receive Date: 20250722
  Receipt Date: 20250724
  Transmission Date: 20251021
  Serious: Yes (Hospitalization, Other)
  Sender: DR REDDYS
  Company Number: None

PATIENT
  Sex: Female

DRUGS (13)
  1. THIOTEPA [Suspect]
     Active Substance: THIOTEPA
     Indication: Primitive neuroectodermal tumour
  2. THIOTEPA [Suspect]
     Active Substance: THIOTEPA
     Indication: Bone marrow conditioning regimen
  3. CYCLOPHOSPHAMIDE [Suspect]
     Active Substance: CYCLOPHOSPHAMIDE
     Indication: Primitive neuroectodermal tumour
  4. CYCLOPHOSPHAMIDE [Suspect]
     Active Substance: CYCLOPHOSPHAMIDE
     Indication: Primitive neuroectodermal tumour
  5. TOPOTECAN [Suspect]
     Active Substance: TOPOTECAN HYDROCHLORIDE
     Indication: Primitive neuroectodermal tumour
     Dosage: EVERY FOUR WEEKS (0.2MG PER DOSE { 1 YEAR OLD, 0.25MG PER DOSE WHEN GREATER OR EQUAL TO1 YEAR OLD) F
     Route: 037
  6. ISOTRETINOIN [Suspect]
     Active Substance: ISOTRETINOIN
     Indication: Primitive neuroectodermal tumour
     Dosage: 80MG/M2 DIVIDED BID
     Route: 048
  7. VINCRISTINE [Suspect]
     Active Substance: VINCRISTINE
     Indication: Primitive neuroectodermal tumour
     Route: 042
  8. CISPLATIN [Suspect]
     Active Substance: CISPLATIN
     Indication: Primitive neuroectodermal tumour
  9. ETOPOSIDE [Suspect]
     Active Substance: ETOPOSIDE
     Indication: Primitive neuroectodermal tumour
  10. METHOTREXATE [Suspect]
     Active Substance: METHOTREXATE
     Indication: Primitive neuroectodermal tumour
  11. CARBOPLATIN [Suspect]
     Active Substance: CARBOPLATIN
     Indication: Primitive neuroectodermal tumour
  12. CARBOPLATIN [Suspect]
     Active Substance: CARBOPLATIN
     Indication: Bone marrow conditioning regimen
  13. VORINOSTAT [Suspect]
     Active Substance: VORINOSTAT
     Indication: Primitive neuroectodermal tumour
     Route: 048

REACTIONS (8)
  - Febrile neutropenia [Unknown]
  - Mucosal inflammation [Unknown]
  - Pseudomonas infection [Unknown]
  - Respiratory arrest [Unknown]
  - Choking [Unknown]
  - Epistaxis [Unknown]
  - Sepsis [Unknown]
  - Product use in unapproved indication [Unknown]
